FAERS Safety Report 17484189 (Version 1)
Quarter: 2020Q1

REPORT INFORMATION
  Report Type: Report from Study
  Country: US (occurrence: US)
  Receive Date: 20200302
  Receipt Date: 20200302
  Transmission Date: 20200409
  Serious: Yes (Hospitalization)
  Sender: FDA-Public Use
  Company Number: NVSC2020US051209

PATIENT
  Sex: Female
  Weight: 137 kg

DRUGS (2)
  1. ILARIS [Suspect]
     Active Substance: CANAKINUMAB
     Indication: STILL^S DISEASE
     Dosage: 300 MG, 28D
     Route: 065
     Dates: start: 2016, end: 2018
  2. ACTEMRA [Concomitant]
     Active Substance: TOCILIZUMAB
     Indication: STILL^S DISEASE
     Route: 065

REACTIONS (2)
  - Treatment failure [Unknown]
  - Ehlers-Danlos syndrome [Recovered/Resolved]

NARRATIVE: CASE EVENT DATE: 2016
